FAERS Safety Report 4812577-2 (Version None)
Quarter: 2005Q4

REPORT INFORMATION
  Report Type: 
  Country: None (occurrence: None)
  Receive Date: 20051028
  Receipt Date: 20041101
  Transmission Date: 20060501
  Serious: No
  Sender: FDA-Public Use
  Company Number: US-GLAXOSMITHKLINE-A0532040A

PATIENT
  Age: 60 Year
  Sex: Female

DRUGS (10)
  1. ADVAIR DISKUS 100/50 [Suspect]
     Indication: ASTHMA
     Dosage: 1PUFF TWICE PER DAY
     Route: 055
  2. FLOVENT [Concomitant]
  3. PULMICORT [Concomitant]
  4. ENAPRIL [Concomitant]
  5. AMITRIPTYLINE HCL [Concomitant]
  6. NEXIUM [Concomitant]
  7. PREVACID [Concomitant]
  8. VIOXX [Concomitant]
  9. BEXTRA [Concomitant]
  10. HYDROCHLOROTHIAZIDE [Concomitant]

REACTIONS (2)
  - DYSPNOEA [None]
  - WHEEZING [None]
